FAERS Safety Report 9281706 (Version 2)
Quarter: 2013Q2

REPORT INFORMATION
  Report Type: Spontaneous
  Country: US (occurrence: US)
  Receive Date: 20130509
  Receipt Date: 20130527
  Transmission Date: 20140414
  Serious: Yes (Hospitalization, Other)
  Sender: FDA-Public Use
  Company Number: US-AMGEN-USASP2013031654

PATIENT
  Age: 83 Year
  Sex: Male
  Weight: 150 kg

DRUGS (16)
  1. XGEVA [Suspect]
     Indication: PROSTATE CANCER
     Dosage: 120 MG, QMO
     Route: 058
     Dates: start: 20130306, end: 20130410
  2. XGEVA [Suspect]
  3. XGEVA [Suspect]
  4. XGEVA [Suspect]
  5. XGEVA [Suspect]
  6. COUMADIN                           /00014802/ [Concomitant]
     Dosage: 5 MG, UNK
  7. CYANOCOBALAMIN [Concomitant]
  8. FINASTERIDE [Concomitant]
     Dosage: 5 MG, UNK
     Route: 048
  9. FOLIC ACID [Concomitant]
     Dosage: 1 MG, UNK
     Route: 048
  10. ISTALOL [Concomitant]
  11. LISINOPRIL [Concomitant]
  12. LUMIGAN [Concomitant]
  13. METOPROLOL [Concomitant]
  14. MULTIVITAMIN                       /00097801/ [Concomitant]
  15. PRAVASTATIN SODIUM [Concomitant]
  16. AMLODIPINE BESYLATE [Concomitant]

REACTIONS (6)
  - Prothrombin time ratio increased [Recovered/Resolved]
  - Asthenia [Not Recovered/Not Resolved]
  - Gastrointestinal haemorrhage [Unknown]
  - Hypotension [Unknown]
  - Dizziness [Unknown]
  - Contusion [Unknown]
